FAERS Safety Report 9110060 (Version 1)
Quarter: 2013Q1

REPORT INFORMATION
  Report Type: Spontaneous
  Country: IN (occurrence: IN)
  Receive Date: 20130222
  Receipt Date: 20130222
  Transmission Date: 20140127
  Serious: Yes (Other)
  Sender: FDA-Public Use
  Company Number: IN-ROCHE-1192184

PATIENT
  Age: 65 Year
  Sex: Male

DRUGS (3)
  1. AVASTIN [Suspect]
     Indication: OFF LABEL USE
     Dosage: 1.25 MG/0.05 ML
     Route: 050
  2. AVASTIN [Suspect]
     Indication: RETINAL HAEMORRHAGE
  3. AVASTIN [Suspect]
     Indication: OFF LABEL USE

REACTIONS (6)
  - Endophthalmitis [Unknown]
  - Anterior chamber inflammation [Unknown]
  - Ciliary hyperaemia [Unknown]
  - Vitritis [Unknown]
  - Cycloplegia [Unknown]
  - Visual acuity reduced [Recovered/Resolved]
